FAERS Safety Report 7505334-X (Version None)
Quarter: 2011Q2

REPORT INFORMATION
  Report Type: 
  Country: None (occurrence: None)
  Receive Date: 20110526
  Receipt Date: 20110523
  Transmission Date: 20111010
  Serious: No
  Sender: FDA-Public Use
  Company Number: US-PFIZER INC-2011022717

PATIENT
  Sex: Female
  Weight: 77.098 kg

DRUGS (4)
  1. LISINOPRIL AND HYDROCHLOROTHIAZIDE [Concomitant]
     Indication: BLOOD PRESSURE ABNORMAL
     Dosage: 10/12.5MG DAILY
     Route: 048
  2. DIFLUCAN [Suspect]
     Indication: NECROSIS
  3. DIFLUCAN [Suspect]
     Indication: INFECTION
     Dosage: 200 MG, 2X/DAY
     Route: 048
     Dates: start: 20100701, end: 20110301
  4. DIFLUCAN [Suspect]
     Indication: PYREXIA

REACTIONS (1)
  - ALOPECIA [None]
